FAERS Safety Report 5949071-1 (Version None)
Quarter: 2008Q4

REPORT INFORMATION
  Report Type: 
  Country: None (occurrence: None)
  Receive Date: 20081111
  Receipt Date: 20081030
  Transmission Date: 20090506
  Serious: Yes (Other)
  Sender: FDA-Public Use
  Company Number: US-PFIZER INC-2008091854

PATIENT
  Sex: Female
  Weight: 71.363 kg

DRUGS (4)
  1. TIKOSYN [Suspect]
     Indication: ATRIAL FIBRILLATION
     Route: 048
     Dates: start: 20080601
  2. ATENOLOL [Concomitant]
  3. PREMARIN [Concomitant]
  4. WARFARIN SODIUM [Concomitant]

REACTIONS (8)
  - ABDOMINAL PAIN UPPER [None]
  - ANOREXIA [None]
  - CARDIAC ABLATION [None]
  - DIARRHOEA [None]
  - MIDDLE INSOMNIA [None]
  - POST PROCEDURAL COMPLICATION [None]
  - VITAMIN B12 DECREASED [None]
  - WEIGHT DECREASED [None]
